FAERS Safety Report 17168125 (Version 2)
Quarter: 2019Q4

REPORT INFORMATION
  Report Type: Spontaneous
  Country: NZ (occurrence: NZ)
  Receive Date: 20191218
  Receipt Date: 20191224
  Transmission Date: 20200122
  Serious: No
  Sender: FDA-Public Use
  Company Number: NZ-ROCHE-2348345

PATIENT
  Sex: Male

DRUGS (1)
  1. AVASTIN [Suspect]
     Active Substance: BEVACIZUMAB
     Indication: MESOTHELIOMA
     Route: 065
     Dates: start: 20181101, end: 20181101

REACTIONS (3)
  - No adverse event [Unknown]
  - Off label use [Unknown]
  - Intentional product use issue [Unknown]
